FAERS Safety Report 19264456 (Version 1)
Quarter: 2021Q2

REPORT INFORMATION
  Report Type: Spontaneous
  Country: US (occurrence: US)
  Receive Date: 20210517
  Receipt Date: 20210517
  Transmission Date: 20210717
  Serious: No
  Sender: FDA-Public Use
  Company Number: None

PATIENT
  Age: 60 Year
  Sex: Male
  Weight: 93 kg

DRUGS (1)
  1. VANCOMYCIN (VANCOMYCIN HCL 1GM/VIL INJ) [Suspect]
     Active Substance: VANCOMYCIN HYDROCHLORIDE
     Dates: start: 20210226, end: 20210226

REACTIONS (6)
  - Tachycardia [None]
  - Rash [None]
  - Hypovolaemic shock [None]
  - Lethargy [None]
  - Haemorrhage [None]
  - Hypotension [None]

NARRATIVE: CASE EVENT DATE: 20210226
